FAERS Safety Report 10650119 (Version 1)
Quarter: 2014Q4

REPORT INFORMATION
  Report Type: Spontaneous
  Country: US (occurrence: US)
  Receive Date: 20141212
  Receipt Date: 20141212
  Transmission Date: 20150529
  Serious: No
  Sender: FDA-Public Use
  Company Number: US-GLAXOSMITHKLINE-US2014GSK035132

PATIENT
  Age: 48 Year
  Sex: Female

DRUGS (3)
  1. ADVAIR DISKUS [Suspect]
     Active Substance: FLUTICASONE PROPIONATE\SALMETEROL XINAFOATE
     Dosage: 500/50 UG, 1 PUFF(S), BID
     Route: 055
     Dates: start: 201408
  2. ADVAIR DISKUS [Suspect]
     Active Substance: FLUTICASONE PROPIONATE\SALMETEROL XINAFOATE
     Indication: ASTHMA
     Dosage: 100/50 UG, 1 PUFF(S), BID
     Route: 055
     Dates: start: 201405, end: 201408
  3. ALBUTEROL. [Concomitant]
     Active Substance: ALBUTEROL

REACTIONS (6)
  - Vocal cord disorder [Not Recovered/Not Resolved]
  - Dysphonia [Not Recovered/Not Resolved]
  - Throat irritation [Not Recovered/Not Resolved]
  - Tongue disorder [Recovered/Resolved]
  - Overdose [Recovered/Resolved]
  - Increased upper airway secretion [Not Recovered/Not Resolved]

NARRATIVE: CASE EVENT DATE: 201405
